FAERS Safety Report 5908483-2 (Version None)
Quarter: 2008Q4

REPORT INFORMATION
  Report Type: 
  Country: None (occurrence: None)
  Receive Date: 20081006
  Receipt Date: 20080905
  Transmission Date: 20090506
  Serious: No
  Sender: FDA-Public Use
  Company Number: US-BAYER-200826074NA

PATIENT
  Sex: Female
  Weight: 59 kg

DRUGS (2)
  1. MIRENA [Suspect]
     Indication: CONTRACEPTION
     Route: 015
     Dates: start: 20070201, end: 20080609
  2. STEROID CREAM [Concomitant]

REACTIONS (7)
  - ACNE [None]
  - AMENORRHOEA [None]
  - DRY SKIN [None]
  - MOOD ALTERED [None]
  - SEBORRHOEIC DERMATITIS [None]
  - SKIN DISORDER [None]
  - SKIN EXFOLIATION [None]
